FAERS Safety Report 8409601-7 (Version None)
Quarter: 2012Q2

REPORT INFORMATION
  Report Type: 
  Country: None (occurrence: None)
  Receive Date: 20120529
  Receipt Date: 20120515
  Transmission Date: 20120825
  Serious: Yes (Other)
  Sender: FDA-Public Use
  Company Number: DKLU1078592

PATIENT
  Age: 20 Year
  Weight: 65.8 kg

DRUGS (7)
  1. TOPAMAX [Concomitant]
  2. VITAMIN D [Concomitant]
  3. CARBATROL [Concomitant]
  4. SYNTHROID [Concomitant]
  5. SABRIL [Suspect]
     Indication: PRODUCT USED FOR UNKNOWN INDICATION
     Dosage: 2000 MG MILLIGRAM(S), 1 IN 1 D, ORAL
     Route: 048
     Dates: start: 19950101
  6. DESMOPRESSIN ACETATE [Concomitant]
  7. KLONOPIN [Concomitant]

REACTIONS (2)
  - RETINAL TOXICITY [None]
  - RETINAL DEGENERATION [None]
